FAERS Safety Report 4308417-0 (Version None)
Quarter: 2004Q1

REPORT INFORMATION
  Report Type: 
  Country: None (occurrence: None)
  Receive Date: 20040301
  Receipt Date: 20030411
  Transmission Date: 20041129
  Serious: Yes (Hospitalization, Disabling)
  Sender: FDA-Public Use
  Company Number: WAES 0304USA01284

PATIENT
  Age: 42 Year
  Sex: Female
  Weight: 104 kg

DRUGS (12)
  1. ALBUTEROL [Concomitant]
     Route: 055
  2. BECONASE AQ [Concomitant]
  3. SYNTHROID [Concomitant]
  4. SINGULAIR [Concomitant]
     Indication: RHINITIS ALLERGIC
     Route: 048
     Dates: start: 19980625
  5. SINGULAIR [Concomitant]
     Indication: ASTHMA
     Route: 048
     Dates: start: 19980625
  6. NORFLEX [Concomitant]
     Indication: MUSCLE SPASMS
     Dates: start: 20001229
  7. VIOXX [Suspect]
     Indication: LOCALISED OSTEOARTHRITIS
     Route: 048
     Dates: start: 20000901, end: 20001228
  8. VIOXX [Suspect]
     Route: 048
     Dates: start: 20001229, end: 20010225
  9. VIOXX [Suspect]
     Route: 048
     Dates: start: 20010226, end: 20010201
  10. VIOXX [Suspect]
     Indication: BACK PAIN
     Route: 048
     Dates: start: 20000901, end: 20001228
  11. VIOXX [Suspect]
     Route: 048
     Dates: start: 20001229, end: 20010225
  12. VIOXX [Suspect]
     Route: 048
     Dates: start: 20010226, end: 20010201

REACTIONS (40)
  - ABDOMINAL HERNIA [None]
  - ABDOMINAL PAIN UPPER [None]
  - ABDOMINAL STRANGULATED HERNIA [None]
  - AEROPHAGIA [None]
  - ANAEMIA MACROCYTIC [None]
  - ASTHMA [None]
  - BACK PAIN [None]
  - CANDIDIASIS [None]
  - CARDIAC DISORDER [None]
  - CARDIAC MURMUR [None]
  - CHEST PAIN [None]
  - COLONIC HAEMORRHAGE [None]
  - CONSTIPATION [None]
  - DRUG HYPERSENSITIVITY [None]
  - DYSPEPSIA [None]
  - DYSPHAGIA [None]
  - FATIGUE [None]
  - FIBROMYALGIA [None]
  - GASTRIC HAEMORRHAGE [None]
  - GASTRIC PERFORATION [None]
  - GASTRIC ULCER [None]
  - GASTRITIS [None]
  - HEADACHE [None]
  - HEART INJURY [None]
  - HEPATIC STEATOSIS [None]
  - HEPATOMEGALY [None]
  - IMPAIRED GASTRIC EMPTYING [None]
  - INFLUENZA LIKE ILLNESS [None]
  - INJURY [None]
  - LOCALISED OSTEOARTHRITIS [None]
  - MUSCLE SPASMS [None]
  - NEPHROLITHIASIS [None]
  - OESOPHAGITIS [None]
  - PARAESTHESIA [None]
  - RECTAL HAEMORRHAGE [None]
  - RENAL DISORDER [None]
  - SKIN DISCOLOURATION [None]
  - UMBILICAL HERNIA [None]
  - VISION BLURRED [None]
  - WEIGHT DECREASED [None]
